FAERS Safety Report 8189302 (Version 4)
Quarter: 2012Q4

REPORT INFORMATION
  Report Type: Spontaneous
  Country: IL (occurrence: None)
  Receive Date: 20111011
  Receipt Date: 20120823
  Transmission Date: 20130627
  Serious: Yes (Other)
  Sender: FDA-Public Use
  Company Number: 2011IL0273

PATIENT
  Age: 49 Year
  Sex: Female

DRUGS (2)
  1. KINERET [Suspect]
     Indication: RHEUMATOID ARTHRITIS
     Dosage: 100 MG SUBCUTANEOUS
     Route: 058
     Dates: start: 200911, end: 20100101
  2. ATENOLOL [Suspect]
     Indication: HYPERTENSION
     Dosage: 2 MG PER ORAL
     Route: 048

REACTIONS (9)
  - Liver injury [None]
  - Non-alcoholic steatohepatitis [None]
  - Hepatosplenomegaly [None]
  - Fatigue [None]
  - Aspartate aminotransferase increased [None]
  - Alanine aminotransferase increased [None]
  - Blood lactate dehydrogenase increased [None]
  - Hepatic necrosis [None]
  - Fibrosis [None]
